FAERS Safety Report 7052792-3 (Version None)
Quarter: 2010Q4

REPORT INFORMATION
  Report Type: 
  Country: None (occurrence: None)
  Receive Date: 20101015
  Receipt Date: 20100927
  Transmission Date: 20110411
  Serious: Yes (Other)
  Sender: FDA-Public Use
  Company Number: B0677189A

PATIENT

DRUGS (1)
  1. VOTRIENT [Suspect]
     Indication: OVARIAN CANCER
     Dosage: 800 MG / CYCLIC / ORAL
     Route: 048

REACTIONS (1)
  - OEDEMA PERIPHERAL [None]
